FAERS Safety Report 21338691 (Version 2)
Quarter: 2022Q4

REPORT INFORMATION
  Report Type: Spontaneous
  Country: US (occurrence: US)
  Receive Date: 20220915
  Receipt Date: 20221001
  Transmission Date: 20230113
  Serious: Yes (Hospitalization)
  Sender: FDA-Public Use
  Company Number: US-TEVA-2022-US-2071902

PATIENT
  Age: 76 Year
  Sex: Male

DRUGS (4)
  1. FENTANYL [Suspect]
     Active Substance: FENTANYL
     Indication: Sedative therapy
     Route: 065
  2. LIDOCAINE [Suspect]
     Active Substance: LIDOCAINE
     Indication: Back pain
     Route: 062
  3. VERSED [Suspect]
     Active Substance: MIDAZOLAM HYDROCHLORIDE
     Indication: Sedative therapy
     Route: 065
  4. CETACAINE ANESTHETIC [Suspect]
     Active Substance: BENZOCAINE\BUTAMBEN\TETRACAINE HYDROCHLORIDE
     Indication: Sedative therapy
     Route: 049

REACTIONS (1)
  - Methaemoglobinaemia [Recovering/Resolving]
